FAERS Safety Report 21654469 (Version 1)
Quarter: 2022Q4

REPORT INFORMATION
  Report Type: Spontaneous
  Country: TR (occurrence: TR)
  Receive Date: 20221129
  Receipt Date: 20221129
  Transmission Date: 20230112
  Serious: Yes (Death, Hospitalization, Other)
  Sender: FDA-Public Use
  Company Number: TR-ALKEM LABORATORIES LIMITED-TR-ALKEM-2022-13347

PATIENT
  Age: 9 Year
  Sex: Female
  Weight: 30 kg

DRUGS (2)
  1. COLCHICINE [Suspect]
     Active Substance: COLCHICINE
     Indication: Familial mediterranean fever
     Dosage: 15 MILLIGRAM (DOSE OF 0.5 MG/KG BODY WEIGHT)
     Route: 065
  2. COLCHICINE [Suspect]
     Active Substance: COLCHICINE
     Dosage: 1 MILLIGRAM/DAY, QD
     Route: 065

REACTIONS (9)
  - Haemophagocytic lymphohistiocytosis [Fatal]
  - Multiple organ dysfunction syndrome [Fatal]
  - Myelosuppression [Fatal]
  - Toxicity to various agents [Fatal]
  - Atrioventricular block complete [Unknown]
  - Hypotension [Unknown]
  - Neutrophil Pelger-Huet anomaly present [Unknown]
  - Renal failure [Unknown]
  - Overdose [Fatal]
